FAERS Safety Report 4640701-3 (Version None)
Quarter: 2005Q2

REPORT INFORMATION
  Report Type: 
  Country: None (occurrence: None)
  Receive Date: 20050419
  Receipt Date: 20050401
  Transmission Date: 20051028
  Serious: Yes (Other)
  Sender: FDA-Public Use
  Company Number: DSA_60480_2005

PATIENT
  Age: 18 Year
  Sex: Female

DRUGS (1)
  1. PARCEL (DIHYDROERGOTAMINE MESILATE PARACETAMOL CAFFEINE) [Suspect]
     Indication: MIGRAINE
     Dosage: 1 TAB QDAY PO
     Route: 048
     Dates: start: 20050201, end: 20050215

REACTIONS (2)
  - ABORTION [None]
  - DRUG EXPOSURE DURING PREGNANCY [None]
